FAERS Safety Report 15223145 (Version 1)
Quarter: 2018Q3

REPORT INFORMATION
  Report Type: Spontaneous
  Country: US (occurrence: US)
  Receive Date: 20180731
  Receipt Date: 20180731
  Transmission Date: 20181010
  Serious: Yes (Other)
  Sender: FDA-Public Use
  Company Number: US-ENDO PHARMACEUTICALS INC-2017-005245

PATIENT
  Age: 63 Year
  Sex: Male
  Weight: 90.7 kg

DRUGS (1)
  1. TESTOPEL [Suspect]
     Active Substance: TESTOSTERONE
     Indication: PRODUCT USED FOR UNKNOWN INDICATION
     Dosage: TEN PELLETS, 750 MG, UNKNOWN
     Route: 058
     Dates: start: 20170821, end: 20170920

REACTIONS (3)
  - Implant site abscess [Recovered/Resolved]
  - Expulsion of medication [Recovered/Resolved]
  - Prescribed overdose [Recovered/Resolved]

NARRATIVE: CASE EVENT DATE: 20170821
